FAERS Safety Report 8238088 (Version 4)
Quarter: 2020Q3

REPORT INFORMATION
  Report Type: Spontaneous
  Country: PT (occurrence: PT)
  Receive Date: 20111109
  Receipt Date: 20200828
  Transmission Date: 20201103
  Serious: Yes (Hospitalization, Other)
  Sender: FDA-Public Use
  Company Number: PHHY2011PT96196

PATIENT
  Age: 66 Year
  Sex: Male

DRUGS (8)
  1. CICLOSPORIN [Suspect]
     Active Substance: CYCLOSPORINE
     Indication: RENAL TRANSPLANT
     Dosage: UNK
     Route: 065
  2. MYCOPHENOLATE MOFETIL. [Suspect]
     Active Substance: MYCOPHENOLATE MOFETIL
     Indication: PROPHYLAXIS AGAINST TRANSPLANT REJECTION
  3. MYCOPHENOLATE MOFETIL. [Suspect]
     Active Substance: MYCOPHENOLATE MOFETIL
     Indication: RENAL TRANSPLANT
     Dosage: UNK (MAINTAINED)
     Route: 065
  4. PREDNISOLONE. [Suspect]
     Active Substance: PREDNISOLONE
     Indication: RENAL TRANSPLANT
     Dosage: 25 MG/DAY
     Route: 065
  5. MYCOPHENOLIC ACID. [Suspect]
     Active Substance: MYCOPHENOLIC ACID
     Indication: PROPHYLAXIS AGAINST TRANSPLANT REJECTION
     Dosage: UNK (DOSE REDUCED)
     Route: 065
  6. COTRIMOXAZOL [Suspect]
     Active Substance: SULFAMETHOXAZOLE\TRIMETHOPRIM
     Indication: PRODUCT USED FOR UNKNOWN INDICATION
     Dosage: UNK
     Route: 065
  7. CICLOSPORIN [Suspect]
     Active Substance: CYCLOSPORINE
     Indication: PROPHYLAXIS AGAINST TRANSPLANT REJECTION
  8. PREDNISOLONE. [Suspect]
     Active Substance: PREDNISOLONE
     Indication: PROPHYLAXIS AGAINST TRANSPLANT REJECTION
     Dosage: 0.5 MG/KG
     Route: 048

REACTIONS (34)
  - Complications of transplanted kidney [Recovered/Resolved]
  - Pyuria [Recovered/Resolved]
  - Pulmonary mass [Recovered/Resolved]
  - Respiratory distress [Recovered/Resolved]
  - Diarrhoea [Recovered/Resolved]
  - Cellulitis [Recovered/Resolved]
  - Papule [Recovered/Resolved]
  - Haematuria [Recovered/Resolved]
  - Pyrexia [Recovered/Resolved]
  - Skin lesion [Recovered/Resolved]
  - Skin oedema [Recovered/Resolved]
  - Kidney transplant rejection [Recovered/Resolved]
  - Urinary tract infection [Recovered/Resolved]
  - Pyelonephritis [Recovered/Resolved]
  - Cryptococcal cutaneous infection [Recovered/Resolved]
  - Respiratory failure [Recovered/Resolved]
  - Oedema peripheral [Recovered/Resolved]
  - Hydronephrosis [Recovered/Resolved]
  - Toxicity to various agents [Unknown]
  - Skin mass [Recovered/Resolved]
  - Pleural effusion [Recovered/Resolved]
  - Pseudomonas infection [Recovered/Resolved]
  - Transplant dysfunction [Not Recovered/Not Resolved]
  - Blood creatinine increased [Recovered/Resolved]
  - Asthenia [Recovered/Resolved]
  - Ulcer [Recovered/Resolved]
  - Dermatitis [Recovered/Resolved]
  - Enterococcal infection [Recovered/Resolved]
  - Peripheral swelling [Recovered/Resolved]
  - Lung infiltration [Recovered/Resolved]
  - Tubulointerstitial nephritis [Recovered/Resolved]
  - C-reactive protein increased [Recovered/Resolved]
  - Cryptococcosis [Recovered/Resolved]
  - Nephritis allergic [Recovered/Resolved]
